FAERS Safety Report 19476448 (Version 4)
Quarter: 2021Q3

REPORT INFORMATION
  Report Type: Report from Study
  Country: CN (occurrence: CN)
  Receive Date: 20210630
  Receipt Date: 20210810
  Transmission Date: 20211014
  Serious: Yes (Death, Hospitalization)
  Sender: FDA-Public Use
  Company Number: CN-ROCHE-2854981

PATIENT
  Age: 54 Year
  Sex: Male
  Weight: 51 kg

DRUGS (7)
  1. XL184 [Suspect]
     Active Substance: CABOZANTINIB
     Indication: HEPATOCELLULAR CARCINOMA
     Dosage: ON 30/MAY/2021 HE RECEIVED THE MOST RECENT DOSE OF XL184 PRIOR TO THE EVENT PARALYTIC ILEUS?ON 07/JU
     Route: 048
     Dates: start: 20210527, end: 20210610
  2. SILYBIN [Concomitant]
  3. XL184 [Suspect]
     Active Substance: CABOZANTINIB
     Route: 048
     Dates: start: 20210612, end: 20210708
  4. ATEZOLIZUMAB. [Suspect]
     Active Substance: ATEZOLIZUMAB
     Indication: HEPATOCELLULAR CARCINOMA
     Dosage: ON 17/JUN/2021, HE RECEIVED THE MOST RECENT DOSE OF ATEZOLIZUMAB PRIOR TO PROGRESSION OF HEPATOCELLU
     Route: 042
     Dates: start: 20210527, end: 20210708
  5. TENOFOVIR DISOPROXIL FUMARATE. [Concomitant]
     Active Substance: TENOFOVIR DISOPROXIL FUMARATE
  6. NIFEDIPINE. [Concomitant]
     Active Substance: NIFEDIPINE
  7. URSODEOXYCHOLIC ACID [Concomitant]
     Active Substance: URSODIOL

REACTIONS (2)
  - Hepatocellular carcinoma [Fatal]
  - Ileus paralytic [Fatal]

NARRATIVE: CASE EVENT DATE: 20210530
